FAERS Safety Report 6805848-1 (Version None)
Quarter: 2010Q2

REPORT INFORMATION
  Report Type: 
  Country: None (occurrence: None)
  Receive Date: 20100629
  Receipt Date: 20071029
  Transmission Date: 20101027
  Serious: Yes (Other)
  Sender: FDA-Public Use
  Company Number: US-PFIZER INC-2007091057

PATIENT
  Sex: Female
  Weight: 64.4 kg

DRUGS (6)
  1. ZYVOX [Suspect]
     Indication: SINUSITIS
     Dates: start: 20071019, end: 20071022
  2. ZYVOX [Suspect]
     Indication: OSTEOMYELITIS
  3. SYNTHROID [Concomitant]
  4. CLARINEX [Concomitant]
  5. ACIPHEX [Concomitant]
  6. ALL OTHER THERAPEUTIC PRODUCTS [Concomitant]

REACTIONS (1)
  - NEUROPATHY PERIPHERAL [None]
